FAERS Safety Report 6927710-6 (Version None)
Quarter: 2010Q3

REPORT INFORMATION
  Report Type: 
  Country: None (occurrence: None)
  Receive Date: 20100817
  Receipt Date: 20100811
  Transmission Date: 20110219
  Serious: Yes (Other)
  Sender: FDA-Public Use
  Company Number: JP-SANOFI-AVENTIS-2010SA044620

PATIENT
  Age: 61 Year
  Sex: Female

DRUGS (2)
  1. AMARYL [Suspect]
     Indication: TYPE 2 DIABETES MELLITUS
     Dosage: DOSAGE UNKNOWN
     Route: 048
     Dates: start: 20100519, end: 20100607
  2. PROPYLTHIOURACIL [Suspect]

REACTIONS (1)
  - STEVENS-JOHNSON SYNDROME [None]
